FAERS Safety Report 6864671-2 (Version None)
Quarter: 2010Q3

REPORT INFORMATION
  Report Type: 
  Country: None (occurrence: None)
  Receive Date: 20100720
  Receipt Date: 20100618
  Transmission Date: 20110219
  Serious: Yes (Hospitalization)
  Sender: FDA-Public Use
  Company Number: 1856

PATIENT
  Sex: Female

DRUGS (1)
  1. CALDOLOR [Suspect]
     Indication: PAIN
     Dosage: 400 MX X 1, IV BOLUS
     Route: 040
     Dates: start: 20100618

REACTIONS (4)
  - INFUSION RELATED REACTION [None]
  - INFUSION SITE SWELLING [None]
  - INJECTION SITE PAIN [None]
  - PHLEBITIS [None]
